FAERS Safety Report 6405783-7 (Version None)
Quarter: 2009Q4

REPORT INFORMATION
  Report Type: 
  Country: None (occurrence: None)
  Receive Date: 20091016
  Receipt Date: 20091016
  Transmission Date: 20100525
  Serious: Yes (Hospitalization, Disabling)
  Sender: FDA-Public Use
  Company Number: None

PATIENT
  Age: 66 Year
  Sex: Female
  Weight: 68.2 kg

DRUGS (1)
  1. OSMOPREP [Suspect]
     Dosage: 32 TABS (48 GRAMS)  3 TABS/ 15 MIN  ORAL 047 W/ 8OZ WATER
     Route: 048
     Dates: start: 20070821

REACTIONS (3)
  - CARDIAC FAILURE CONGESTIVE [None]
  - RENAL DISORDER [None]
  - RENAL FAILURE ACUTE [None]
